FAERS Safety Report 15702829 (Version 1)
Quarter: 2018Q4

REPORT INFORMATION
  Report Type: Spontaneous
  Country: US (occurrence: US)
  Receive Date: 20181127
  Receipt Date: 20181127
  Transmission Date: 20190205
  Serious: Yes (Hospitalization)
  Sender: FDA-Public Use
  Company Number: None

PATIENT
  Age: 47 Year
  Sex: Female

DRUGS (1)
  1. TOBRAMYCIN. [Suspect]
     Active Substance: TOBRAMYCIN
     Indication: ACUTE RESPIRATORY FAILURE
     Dosage: ?          OTHER DOSE:VIAL;OTHER ROUTE:NEBULIZER?
     Dates: start: 20181108

REACTIONS (1)
  - Infection [None]

NARRATIVE: CASE EVENT DATE: 20181123
